FAERS Safety Report 7077067-8 (Version None)
Quarter: 2010Q4

REPORT INFORMATION
  Report Type: 
  Country: None (occurrence: None)
  Receive Date: 20101101
  Receipt Date: 20101025
  Transmission Date: 20110411
  Serious: Yes (Hospitalization)
  Sender: FDA-Public Use
  Company Number: DE-ROCHE-733456

PATIENT
  Sex: Female
  Weight: 53 kg

DRUGS (9)
  1. BEVACIZUMAB [Suspect]
     Indication: BREAST CANCER
     Dosage: LAST DOSE PRIOR TO SAE: 29 APRIL 2010.  ON DAY 1 OF A 21 DAY CYCLE TERMINATED
     Route: 042
     Dates: start: 20090709
  2. CAPECITABINE [Suspect]
     Indication: BREAST CANCER
     Dosage: ON DAYS 1 TO 14 OF A 21 DAY CYCLE
     Route: 048
     Dates: start: 20090709
  3. CAPECITABINE [Suspect]
     Dosage: LASTE DOSE PRIOR TO SAE ON 11 MAY 2010. DOSE REDUCED.TERMINATED.
     Route: 048
     Dates: start: 20091203
  4. DELIX [Concomitant]
     Dosage: DELIX 5  DOSE 1/2 -0- 1/2
  5. HCT [Concomitant]
     Dosage: HCT12.5 DOSE 1-0-0
  6. NEBIVOLOL HCL [Concomitant]
     Dosage: NEBILET 5 DOSE 1/2-0-1/2
  7. AMLODIPINE [Concomitant]
     Dosage: AMLODIPIN 5 DOSE 0-0-1
  8. ZOLPIDEM [Concomitant]
     Dosage: ZOPLIDEM 7.5 DOSE 24 NACHT
  9. KALINOR [Concomitant]
     Dosage: KALINOR RET DOSE 1-1-1

REACTIONS (1)
  - RENAL DISORDER [None]
